FAERS Safety Report 8387730-4 (Version None)
Quarter: 2012Q2

REPORT INFORMATION
  Report Type: 
  Country: None (occurrence: None)
  Receive Date: 20120525
  Receipt Date: 20120515
  Transmission Date: 20120825
  Serious: Yes (Hospitalization)
  Sender: FDA-Public Use
  Company Number: FR-VERTEX PHARMACEUTICALS INC.-000000000000000119

PATIENT
  Age: 53 Year
  Sex: Female

DRUGS (4)
  1. COPEGUS [Concomitant]
     Indication: HEPATITIS C
     Dates: end: 20111214
  2. PEGASYS [Concomitant]
     Indication: HEPATITIS C
     Dates: start: 20111026
  3. INCIVO (TELAPREVIR) [Suspect]
     Indication: HEPATITIS C
     Dosage: DOSAGE FORM: TABLET
     Route: 048
     Dates: start: 20111026
  4. INCIVO (TELAPREVIR) [Concomitant]

REACTIONS (1)
  - PANCREATITIS [None]
